FAERS Safety Report 20757934 (Version 1)
Quarter: 2022Q2

REPORT INFORMATION
  Report Type: Spontaneous
  Country: US (occurrence: US)
  Receive Date: 20220427
  Receipt Date: 20220427
  Transmission Date: 20220720
  Serious: No
  Sender: FDA-Public Use
  Company Number: USA--2021-US-000736

PATIENT
  Age: 91 Year
  Sex: Male

DRUGS (2)
  1. LATANOPROST [Suspect]
     Active Substance: LATANOPROST
     Dates: start: 20210913, end: 20211001
  2. Dorzolamide HCl/Timolol Maleate 10 mL bottle o/s [Concomitant]

REACTIONS (1)
  - Drug ineffective [Recovered/Resolved]
